FAERS Safety Report 18521534 (Version 1)
Quarter: 2020Q4

REPORT INFORMATION
  Report Type: Spontaneous
  Country: US (occurrence: US)
  Receive Date: 20201118
  Receipt Date: 20201118
  Transmission Date: 20210114
  Serious: Yes (Hospitalization)
  Sender: FDA-Public Use
  Company Number: None

PATIENT
  Sex: Male

DRUGS (12)
  1. OMPERAZOLE [Concomitant]
     Active Substance: OMEPRAZOLE
  2. MYCOPHENOLIC, 180MG [Suspect]
     Active Substance: MYCOPHENOLIC ACID
     Indication: RENAL TRANSPLANT
     Route: 048
     Dates: start: 20180202
  3. SIMVASTATION [Concomitant]
  4. WARFARIN [Concomitant]
     Active Substance: WARFARIN
  5. CYCLOSPORINE 25MG [Suspect]
     Active Substance: CYCLOSPORINE
     Indication: RENAL TRANSPLANT
     Route: 048
     Dates: start: 20180202
  6. MAGNESIUM [Concomitant]
     Active Substance: MAGNESIUM
  7. PREDNISONE. [Concomitant]
     Active Substance: PREDNISONE
  8. FUROSEMIDE. [Concomitant]
     Active Substance: FUROSEMIDE
  9. ALLOPURINOL. [Concomitant]
     Active Substance: ALLOPURINOL
  10. ENALAPRIL [Concomitant]
     Active Substance: ENALAPRIL
  11. FAMOTIDINE. [Concomitant]
     Active Substance: FAMOTIDINE
  12. HYDROCO/APAP [Concomitant]
     Active Substance: ACETAMINOPHEN\HYDROCODONE

REACTIONS (1)
  - Road traffic accident [None]
